FAERS Safety Report 16028561 (Version 5)
Quarter: 2019Q2

REPORT INFORMATION
  Report Type: Spontaneous
  Country: HU (occurrence: HU)
  Receive Date: 20190304
  Receipt Date: 20190511
  Transmission Date: 20190711
  Serious: Yes (Hospitalization, Other)
  Sender: FDA-Public Use
  Company Number: HU-ROCHE-2276113

PATIENT
  Age: 71 Year
  Sex: Male

DRUGS (3)
  1. ESBRIET [Suspect]
     Active Substance: PIRFENIDONE
     Indication: IDIOPATHIC PULMONARY FIBROSIS
     Route: 048
     Dates: start: 201901, end: 2019
  2. SYNCUMAR [Concomitant]
     Active Substance: ACENOCOUMAROL
     Indication: PULMONARY EMBOLISM
     Route: 065
  3. ESBRIET [Suspect]
     Active Substance: PIRFENIDONE
     Route: 048
     Dates: start: 20190228, end: 201903

REACTIONS (4)
  - Pneumonia [Not Recovered/Not Resolved]
  - Neutropenia [Not Recovered/Not Resolved]
  - Pancytopenia [Not Recovered/Not Resolved]
  - Acute myeloid leukaemia [Unknown]

NARRATIVE: CASE EVENT DATE: 20190211
